FAERS Safety Report 25595624 (Version 3)
Quarter: 2025Q4

REPORT INFORMATION
  Report Type: Report from Study
  Country: CO (occurrence: CO)
  Receive Date: 20250723
  Receipt Date: 20251117
  Transmission Date: 20260117
  Serious: Yes (Hospitalization, Other)
  Sender: AMGEN
  Company Number: CO-AMGEN-COLSL2025055485

PATIENT
  Age: 77 Year
  Sex: Male

DRUGS (1)
  1. VECTIBIX [Suspect]
     Active Substance: PANITUMUMAB
     Indication: Colorectal cancer metastatic
     Dosage: 480 MILLIGRAM, Q2WK
     Route: 040
     Dates: start: 20250210, end: 20250722

REACTIONS (14)
  - Decreased immune responsiveness [Recovering/Resolving]
  - Malaise [Recovering/Resolving]
  - Pain of skin [Recovering/Resolving]
  - Asthenia [Recovering/Resolving]
  - Decreased appetite [Recovering/Resolving]
  - Eye operation [Recovering/Resolving]
  - Skin burning sensation [Not Recovered/Not Resolved]
  - Papule [Not Recovered/Not Resolved]
  - Discomfort [Not Recovered/Not Resolved]
  - Depressed mood [Not Recovered/Not Resolved]
  - Skin toxicity [Unknown]
  - Dry skin [Not Recovered/Not Resolved]
  - Skin exfoliation [Not Recovered/Not Resolved]
  - Rash [Not Recovered/Not Resolved]

NARRATIVE: CASE EVENT DATE: 20250101
